FAERS Safety Report 9235808 (Version 2)
Quarter: 2013Q2

REPORT INFORMATION
  Report Type: Report from Study
  Country: US (occurrence: US)
  Receive Date: 20130417
  Receipt Date: 20130531
  Transmission Date: 20140414
  Serious: Yes (Other)
  Sender: FDA-Public Use
  Company Number: PHEH2013US008466

PATIENT
  Sex: Female
  Weight: 27.21 kg

DRUGS (1)
  1. TOBI [Suspect]
     Indication: CEREBRAL PALSY
     Dosage: 0.5 DF, BID

REACTIONS (3)
  - Convulsion [Unknown]
  - Diarrhoea [Unknown]
  - Pyrexia [Unknown]
